FAERS Safety Report 7347953-X (Version None)
Quarter: 2011Q1

REPORT INFORMATION
  Report Type: 
  Country: None (occurrence: None)
  Receive Date: 20110311
  Receipt Date: 20110214
  Transmission Date: 20110831
  Serious: Yes (Other)
  Sender: FDA-Public Use
  Company Number: US-BAYER-201027084NA

PATIENT
  Sex: Female
  Weight: 43.537 kg

DRUGS (2)
  1. CONTRACEPTIVES NOS [Concomitant]
  2. YAZ [Suspect]
     Indication: PRODUCT USED FOR UNKNOWN INDICATION
     Route: 048
     Dates: start: 20070101

REACTIONS (2)
  - GALLBLADDER DISORDER [None]
  - ABDOMINAL PAIN UPPER [None]
